FAERS Safety Report 4718849-4 (Version None)
Quarter: 2005Q3

REPORT INFORMATION
  Report Type: 
  Country: None (occurrence: None)
  Receive Date: 20050719
  Receipt Date: 20050704
  Transmission Date: 20060218
  Serious: Yes (Hospitalization)
  Sender: FDA-Public Use
  Company Number: 2005094100

PATIENT
  Age: 65 Year
  Sex: Male
  Weight: 80 kg

DRUGS (2)
  1. ESTRACYT         (ESTRAMUSTINE PHOSPHATE SODIUM) [Suspect]
     Indication: PROSTATE CANCER METASTATIC
     Dosage: 3 CAPSULES (2 IN 1 D), ORAL
     Route: 048
     Dates: start: 20030101, end: 20040101
  2. OMEPRAZOLE [Concomitant]

REACTIONS (3)
  - SUPRAVENTRICULAR TACHYCARDIA [None]
  - SYNCOPE [None]
  - VERTIGO [None]
